FAERS Safety Report 4890873-0 (Version None)
Quarter: 2006Q1

REPORT INFORMATION
  Report Type: 
  Country: None (occurrence: None)
  Receive Date: 20060125
  Receipt Date: 20060113
  Transmission Date: 20060701
  Serious: Yes (Death)
  Sender: FDA-Public Use
  Company Number: GB-JNJFOC-20060102958

PATIENT
  Sex: Male
  Weight: 56 kg

DRUGS (18)
  1. DOXIL [Suspect]
     Route: 042
  2. DOXIL [Suspect]
     Indication: MULTIPLE MYELOMA
     Route: 042
  3. VELCADE [Suspect]
     Route: 042
  4. VELCADE [Suspect]
     Indication: MULTIPLE MYELOMA
     Route: 042
  5. ACYCLOVIR [Concomitant]
     Route: 048
  6. ACYCLOVIR [Concomitant]
     Route: 048
  7. ACYCLOVIR [Concomitant]
     Indication: PROPHYLAXIS
     Route: 048
  8. PYRIDOXINE HCL [Concomitant]
     Indication: PROPHYLAXIS
     Route: 048
  9. AMOXICILLIN [Concomitant]
     Route: 048
  10. DOMPERIDONE [Concomitant]
     Route: 048
  11. GRANISETRON [Concomitant]
     Route: 042
  12. FILGRASTIM [Concomitant]
     Route: 058
  13. FILGRASTIM [Concomitant]
     Route: 058
  14. PARACETAMOL [Concomitant]
     Route: 048
  15. ARTIFICIAL SALIVA [Concomitant]
     Route: 048
  16. DIFFLAM [Concomitant]
  17. SODIUM DOCUSATE [Concomitant]
  18. RANITIDINE [Concomitant]
     Route: 048

REACTIONS (2)
  - FEBRILE NEUTROPENIA [None]
  - MYOCARDIAL INFARCTION [None]
